FAERS Safety Report 6599874 (Version 3)
Quarter: 2015Q1

REPORT INFORMATION
  Report Type: Spontaneous
  Country: US (occurrence: US)
  Receive Date: 20080328
  Receipt Date: 20150330
  Transmission Date: 20150721
  Serious: Yes (Hospitalization, Other)
  Sender: FDA-Public Use
  Company Number: US-BAYER-US-2007-021552

PATIENT
  Age: 19 Year
  Sex: Female
  Weight: 70.3 kg

DRUGS (2)
  1. MIRENA [Suspect]
     Active Substance: LEVONORGESTREL
     Indication: CONTRACEPTION
     Dosage: 20 ?G/DAY, CONT
     Route: 015
     Dates: start: 20051117, end: 20070608
  2. ORTHO EVRA [Concomitant]
     Active Substance: ETHINYL ESTRADIOL\NORELGESTROMIN

REACTIONS (15)
  - Uterine perforation [None]
  - Emotional distress [None]
  - Weight increased [None]
  - Abdominal pain lower [Not Recovered/Not Resolved]
  - Anxiety [None]
  - Medical device pain [None]
  - Genital haemorrhage [None]
  - Dyspareunia [None]
  - Headache [Unknown]
  - Amenorrhoea [Not Recovered/Not Resolved]
  - Injury [None]
  - Depression [None]
  - Stress [None]
  - Device issue [None]
  - Device difficult to use [None]

NARRATIVE: CASE EVENT DATE: 2005
